FAERS Safety Report 5432118-9 (Version None)
Quarter: 2007Q3

REPORT INFORMATION
  Report Type: 
  Country: None (occurrence: None)
  Receive Date: 20070830
  Receipt Date: 20070820
  Transmission Date: 20080115
  Serious: Yes (Hospitalization)
  Sender: FDA-Public Use
  Company Number: GB-PFIZER INC-2007069638

PATIENT
  Sex: Female

DRUGS (10)
  1. LYRICA [Suspect]
     Route: 048
  2. MIRTAZAPINE [Concomitant]
  3. ASPIRIN [Concomitant]
  4. LANSOPRAZOLE [Concomitant]
  5. QUININE [Concomitant]
  6. PERINDOPRIL ERBUMINE [Concomitant]
  7. ATENOLOL [Concomitant]
  8. ALENDRONIC ACID [Concomitant]
  9. MEBEVERINE [Concomitant]
  10. TORSEMIDE [Concomitant]

REACTIONS (3)
  - CARDIOVASCULAR DISORDER [None]
  - DRY MOUTH [None]
  - TREMOR [None]
